FAERS Safety Report 12289680 (Version 1)
Quarter: 2016Q2

REPORT INFORMATION
  Report Type: Spontaneous
  Country: US (occurrence: None)
  Receive Date: 20160420
  Receipt Date: 20160420
  Transmission Date: 20160815
  Serious: No
  Sender: FDA-Public Use
  Company Number: None

PATIENT
  Sex: Female

DRUGS (6)
  1. HYZAAR [Concomitant]
     Active Substance: HYDROCHLOROTHIAZIDE\LOSARTAN POTASSIUM
  2. FASLODEX [Concomitant]
     Active Substance: FULVESTRANT
  3. LUNESTA [Concomitant]
     Active Substance: ESZOPICLONE
  4. NORVASC [Concomitant]
     Active Substance: AMLODIPINE BESYLATE
  5. ADVIL [Concomitant]
     Active Substance: IBUPROFEN
  6. IBRANCE [Suspect]
     Active Substance: PALBOCICLIB
     Indication: BREAST CANCER
     Route: 048
     Dates: start: 20160223

REACTIONS (1)
  - White blood cell count decreased [None]

NARRATIVE: CASE EVENT DATE: 2016
